FAERS Safety Report 8059674-9 (Version None)
Quarter: 2012Q1

REPORT INFORMATION
  Report Type: 
  Country: None (occurrence: None)
  Receive Date: 20120120
  Receipt Date: 20120111
  Transmission Date: 20120608
  Serious: Yes (Other)
  Sender: FDA-Public Use
  Company Number: PHHY2012FI001965

PATIENT
  Age: 35 Year
  Sex: Male

DRUGS (6)
  1. TERBINAFINE HCL [Interacting]
     Indication: ONYCHOMYCOSIS
     Dosage: 3-MONTHS COURSE
     Dates: start: 20110101
  2. RIVATRIL [Concomitant]
  3. CLOZAPINE [Suspect]
     Indication: MENTAL DISORDER
     Dosage: 550 MG
  4. VALPROIC ACID [Concomitant]
  5. CLOZAPINE [Interacting]
     Dosage: 700 MG,/DAY
  6. CISORDINOL [Concomitant]
     Dosage: 25 MG, BID

REACTIONS (6)
  - DRUG INTERACTION [None]
  - ONYCHOMYCOSIS [None]
  - DELUSION [None]
  - DRUG INEFFECTIVE [None]
  - MENTAL DISORDER [None]
  - HALLUCINATION [None]
